FAERS Safety Report 6617772-8 (Version None)
Quarter: 2010Q1

REPORT INFORMATION
  Report Type: 
  Country: None (occurrence: None)
  Receive Date: 20100308
  Receipt Date: 20100226
  Transmission Date: 20100710
  Serious: Yes (Other)
  Sender: FDA-Public Use
  Company Number: US-AMGEN-TCS387639

PATIENT
  Sex: Male
  Weight: 88.5 kg

DRUGS (7)
  1. ENBREL [Suspect]
     Indication: ANKYLOSING SPONDYLITIS
     Route: 058
     Dates: start: 20100120
  2. ENBREL [Suspect]
     Indication: DRUG USE FOR UNKNOWN INDICATION
  3. ANTIHYPERTENSIVE MEDICATION NOS [Concomitant]
  4. TRAMADOL HCL [Concomitant]
  5. ASPIRIN [Concomitant]
  6. DIOVAN HCT [Concomitant]
  7. NAPROXEN [Concomitant]

REACTIONS (5)
  - DIZZINESS [None]
  - FALL [None]
  - HEADACHE [None]
  - NAUSEA [None]
  - SYNCOPE [None]
